FAERS Safety Report 17741194 (Version 2)
Quarter: 2020Q2

REPORT INFORMATION
  Report Type: Spontaneous
  Country: JP (occurrence: JP)
  Receive Date: 20200504
  Receipt Date: 20200521
  Transmission Date: 20200714
  Serious: Yes (Other)
  Sender: FDA-Public Use
  Company Number: NVSC2020JP118123

PATIENT
  Age: 74 Year
  Sex: Female

DRUGS (3)
  1. PAZOPANIB [Suspect]
     Active Substance: PAZOPANIB
     Dosage: 200 MG, QD
     Route: 065
  2. PAZOPANIB [Suspect]
     Active Substance: PAZOPANIB
     Indication: STEWART-TREVES SYNDROME
     Dosage: 600 MG, QD
     Route: 065
  3. PAZOPANIB [Suspect]
     Active Substance: PAZOPANIB
     Dosage: 400 MG, QD
     Route: 065

REACTIONS (5)
  - Hepatic function abnormal [Unknown]
  - Decreased appetite [Unknown]
  - Hypovolaemic shock [Unknown]
  - Gastrointestinal haemorrhage [Unknown]
  - Fatigue [Unknown]
